FAERS Safety Report 15191138 (Version 1)
Quarter: 2018Q3

REPORT INFORMATION
  Report Type: Spontaneous
  Country: US (occurrence: US)
  Receive Date: 20180724
  Receipt Date: 20180724
  Transmission Date: 20181010
  Serious: No
  Sender: FDA-Public Use
  Company Number: US-EMD SERONO-9036597

PATIENT
  Sex: Female

DRUGS (1)
  1. REBIF [Suspect]
     Active Substance: INTERFERON BETA-1A
     Indication: MULTIPLE SCLEROSIS
     Route: 058

REACTIONS (6)
  - Influenza like illness [Unknown]
  - Multiple sclerosis [Unknown]
  - Vomiting [Unknown]
  - Malaise [Unknown]
  - Nausea [Unknown]
  - Drug intolerance [Unknown]
